FAERS Safety Report 23768015 (Version 1)
Quarter: 2024Q2

REPORT INFORMATION
  Report Type: Spontaneous
  Country: US (occurrence: None)
  Receive Date: 20240419
  Receipt Date: 20240419
  Transmission Date: 20240716
  Serious: Yes (Other)
  Sender: FDA-Public Use
  Company Number: None

PATIENT
  Age: 68 Year
  Sex: Male
  Weight: 99 kg

DRUGS (1)
  1. ELIQUIS [Suspect]
     Active Substance: APIXABAN
     Indication: Thrombosis
     Dosage: FREQUENCY : TWICE A DAY?
     Route: 048
     Dates: start: 20240412, end: 20240414

REACTIONS (3)
  - Rash [None]
  - Rash pruritic [None]
  - Therapy cessation [None]

NARRATIVE: CASE EVENT DATE: 20240414
